FAERS Safety Report 6201381-9 (Version None)
Quarter: 2009Q2

REPORT INFORMATION
  Report Type: 
  Country: None (occurrence: None)
  Receive Date: 20090526
  Receipt Date: 20090519
  Transmission Date: 20091009
  Serious: Yes (Life-Threatening, Hospitalization, Other)
  Sender: FDA-Public Use
  Company Number: PHHY2009GB14568

PATIENT
  Sex: Male

DRUGS (5)
  1. CLOZARIL [Suspect]
     Indication: SCHIZOPHRENIA
     Dosage: 400/ 450 MG
     Dates: start: 19950316
  2. CLOZARIL [Suspect]
     Dosage: 200 MG DAILY
  3. VALPROATE SODIUM [Concomitant]
  4. DIAZEPAM [Concomitant]
  5. VENLAFAXINE [Concomitant]
     Indication: DEPRESSIVE SYMPTOM
     Dosage: 75 MG
     Route: 048

REACTIONS (11)
  - ANTIPSYCHOTIC DRUG LEVEL INCREASED [None]
  - ASTHENIA [None]
  - CONSTIPATION [None]
  - DRUG DOSE OMISSION [None]
  - EATING DISORDER [None]
  - FATIGUE [None]
  - FEELING HOT [None]
  - GAIT DISTURBANCE [None]
  - LETHARGY [None]
  - PYREXIA [None]
  - WHITE BLOOD CELL COUNT DECREASED [None]
